FAERS Safety Report 8949103 (Version 1)
Quarter: 2012Q4

REPORT INFORMATION
  Report Type: 
  Country: BE (occurrence: BE)
  Receive Date: 20121206
  Receipt Date: 20121206
  Transmission Date: 20130627
  Serious: Yes (Other)
  Sender: FDA-Public Use
  Company Number: BE-TEVA-372306ISR

PATIENT
  Sex: Female
  Weight: 50.5 kg

DRUGS (1)
  1. OXALIPLATINE [Suspect]

REACTIONS (3)
  - Neuropathy peripheral [Unknown]
  - Fall [Unknown]
  - Muscular weakness [Unknown]
